FAERS Safety Report 16184194 (Version 1)
Quarter: 2019Q2

REPORT INFORMATION
  Report Type: Spontaneous
  Country: US (occurrence: US)
  Receive Date: 20190308
  Receipt Date: 20190308
  Transmission Date: 20190711
  Serious: Yes (Death, Hospitalization)
  Sender: FDA-Public Use
  Company Number: None

PATIENT
  Age: 77 Year
  Sex: Female
  Weight: 117.93 kg

DRUGS (1)
  1. SENSIPAR [Suspect]
     Active Substance: CINACALCET HYDROCHLORIDE
     Indication: HYPERCALCAEMIA
     Dates: start: 20181201, end: 20190110

REACTIONS (4)
  - Neck pain [None]
  - Pain in extremity [None]
  - Bone pain [None]
  - Confusional state [None]

NARRATIVE: CASE EVENT DATE: 20190121
